FAERS Safety Report 13129160 (Version 1)
Quarter: 2017Q1

REPORT INFORMATION
  Report Type: Report from Study
  Country: TR (occurrence: TR)
  Receive Date: 20170119
  Receipt Date: 20170119
  Transmission Date: 20170428
  Serious: Yes (Other)
  Sender: FDA-Public Use
  Company Number: TR-SUN PHARMACEUTICAL INDUSTRIES LTD-2017R1-131690

PATIENT
  Age: 9 Month

DRUGS (4)
  1. VINCRISTINE [Suspect]
     Active Substance: VINCRISTINE
     Dosage: 1.5 MG/M2, 2 TIMES EVERY 6 WEEKLY
     Route: 065
  2. DOXORUBICIN [Suspect]
     Active Substance: DOXORUBICIN
     Indication: NEPHROBLASTOMA
     Dosage: 20 MG/M2 3 D EVERY 6 WEEK UPTO CUMULATIVE DOSE OF 360 MG/M2 FOR 12 MONTHS
  3. VINCRISTINE [Suspect]
     Active Substance: VINCRISTINE
     Indication: NEPHROBLASTOMA
     Dosage: 1.5 MG/M2, 1/WEEK FOR 10 WEEKS
     Route: 065
  4. ACTINOMYCIN D [Suspect]
     Active Substance: DACTINOMYCIN
     Indication: NEPHROBLASTOMA
     Dosage: 0.015 MG/KG FOR 5 DAY EVERY 6 WEEK FOR TOTAL OF 12 MONTHS
     Route: 065

REACTIONS (1)
  - Pancytopenia [Unknown]
